FAERS Safety Report 11101693 (Version 1)
Quarter: 2015Q2

REPORT INFORMATION
  Report Type: Report from Study
  Country: BR (occurrence: BR)
  Receive Date: 20150508
  Receipt Date: 20150508
  Transmission Date: 20150821
  Serious: Yes (Other)
  Sender: FDA-Public Use
  Company Number: PHHY2015BR053487

PATIENT
  Sex: Female
  Weight: 78 kg

DRUGS (3)
  1. OLCADIL [Suspect]
     Active Substance: CLOXAZOLAM
     Indication: BLOOD PRESSURE
     Dosage: 2 MG, QD (SOME TIMES SHE USED 2 DAILY EVERY 12 HOURS)
     Route: 065
     Dates: start: 1984
  2. DIOVAN TRIPLE [Suspect]
     Active Substance: AMLODIPINE BESYLATE\HYDROCHLOROTHIAZIDE\VALSARTAN
     Indication: HYPERTENSION
     Dosage: UNK, QD (ONCE IN MORNING)
     Route: 065
  3. CATAFLAM [Suspect]
     Active Substance: DICLOFENAC POTASSIUM
     Indication: MYALGIA
     Route: 065

REACTIONS (4)
  - Hearing impaired [Unknown]
  - Vertebral lesion [Recovering/Resolving]
  - Arthropathy [Unknown]
  - Osteoarthritis [Unknown]

NARRATIVE: CASE EVENT DATE: 2008
